FAERS Safety Report 9419533 (Version 2)
Quarter: 2013Q3

REPORT INFORMATION
  Report Type: Spontaneous
  Country: US (occurrence: US)
  Receive Date: 20130725
  Receipt Date: 20130930
  Transmission Date: 20140515
  Serious: Yes (Death)
  Sender: FDA-Public Use
  Company Number: US-CELGENEUS-163-21880-13073049

PATIENT
  Age: 31 Year
  Sex: Male

DRUGS (2)
  1. REVLIMID [Suspect]
     Indication: HODGKIN^S DISEASE
     Dosage: 10 MILLIGRAM
     Route: 048
     Dates: start: 201302, end: 2013
  2. PREDNISONE [Concomitant]
     Indication: HODGKIN^S DISEASE
     Dosage: 50 MILLIGRAM
     Route: 065

REACTIONS (1)
  - Hodgkin^s disease [Fatal]
